FAERS Safety Report 9409706 (Version 2)
Quarter: 2013Q2

REPORT INFORMATION
  Report Type: Spontaneous
  Country: US (occurrence: None)
  Receive Date: 20130605
  Receipt Date: 20130626
  Transmission Date: 20140414
  Serious: Yes (Hospitalization)
  Sender: FDA-Public Use
  Company Number: CABO-13002470

PATIENT
  Age: 66 Year
  Sex: Male

DRUGS (5)
  1. COMETRIQ [Suspect]
     Indication: THYROID CANCER
     Route: 048
     Dates: start: 20130314, end: 201303
  2. ACTOS (PIOGLITAZONE HYDROCHLORIDE) [Concomitant]
  3. CRESTOR (ROSUVASTATIN CALCIUM) [Concomitant]
  4. ZYRTEC (CETIRIZINE  HYDROCHLORIDE) [Concomitant]
  5. NOVOLOG (INSULIN ASPART) [Concomitant]

REACTIONS (6)
  - Blister [None]
  - Sepsis [None]
  - Skin ulcer [None]
  - Diarrhoea [None]
  - Flatulence [None]
  - Refusal of treatment by patient [None]
